FAERS Safety Report 22652354 (Version 1)
Quarter: 2023Q2

REPORT INFORMATION
  Report Type: Report from Study
  Country: IL (occurrence: IL)
  Receive Date: 20230628
  Receipt Date: 20230628
  Transmission Date: 20230722
  Serious: Yes (Death)
  Sender: FDA-Public Use
  Company Number: IL-ABBVIE-4708721

PATIENT
  Age: 76 Year
  Sex: Male
  Weight: 74 kg

DRUGS (32)
  1. VENCLEXTA [Suspect]
     Active Substance: VENETOCLAX
     Indication: Acute myeloid leukaemia
     Dosage: DD MODIFIED- REDUCTION:COUNT RECOVERY
     Route: 048
     Dates: start: 20220111, end: 20220221
  2. VENCLEXTA [Suspect]
     Active Substance: VENETOCLAX
     Indication: Acute myeloid leukaemia
     Dosage: RAMP UP
     Route: 048
     Dates: start: 20211229, end: 20211229
  3. VENCLEXTA [Suspect]
     Active Substance: VENETOCLAX
     Indication: Acute myeloid leukaemia
     Dosage: RAMP UP
     Route: 048
     Dates: start: 20211230, end: 20211230
  4. VENCLEXTA [Suspect]
     Active Substance: VENETOCLAX
     Indication: Acute myeloid leukaemia
     Dosage: RAMP UP
     Route: 048
     Dates: start: 20211228, end: 20211228
  5. VENCLEXTA [Suspect]
     Active Substance: VENETOCLAX
     Indication: Acute myeloid leukaemia
     Dosage: MODIFICATION - DOSE INCREASE
     Route: 048
     Dates: start: 20230213, end: 20230217
  6. VENCLEXTA [Suspect]
     Active Substance: VENETOCLAX
     Indication: Acute myeloid leukaemia
     Dosage: DD MODIFIED-INCREASE :COUNT RECOVERY
     Route: 048
     Dates: start: 20211231, end: 20220110
  7. VENCLEXTA [Suspect]
     Active Substance: VENETOCLAX
     Indication: Acute myeloid leukaemia
     Dosage: DISCONTINUATION :COUNT RECOVERY
     Route: 048
     Dates: start: 20220303, end: 20230212
  8. VENCLEXTA [Suspect]
     Active Substance: VENETOCLAX
     Indication: Acute myeloid leukaemia
     Dosage: DD INCREASE DUE TO INVESTIGATOR DECISION
     Route: 048
     Dates: start: 20220222, end: 20220301
  9. AZACITIDINE [Suspect]
     Active Substance: AZACITIDINE
     Indication: Acute myeloid leukaemia
     Dosage: CYCLE 10-DOSE MODIFIED: COUNT RECOVERY
     Route: 042
     Dates: start: 20220228, end: 20220303
  10. AZACITIDINE [Suspect]
     Active Substance: AZACITIDINE
     Indication: Acute myeloid leukaemia
     Dosage: CYCLE 11-DOSE MODIFIED: COUNT RECOVERY
     Route: 042
     Dates: start: 20220606, end: 20220609
  11. AZACITIDINE [Suspect]
     Active Substance: AZACITIDINE
     Indication: Acute myeloid leukaemia
     Dosage: CYCLE 9-DOSE MODIFIED: COUNT RECOVERY
     Route: 042
     Dates: start: 20220102, end: 20220105
  12. AZACITIDINE [Suspect]
     Active Substance: AZACITIDINE
     Indication: Acute myeloid leukaemia
     Dosage: CYCLE 11-DOSE MODIFIED: COUNT RECOVERY
     Route: 042
     Dates: start: 20220509, end: 20220509
  13. AZACITIDINE [Suspect]
     Active Substance: AZACITIDINE
     Indication: Acute myeloid leukaemia
     Dosage: CYCLE 12-DOSE MODIFIED: COUNT RECOVERY
     Route: 042
     Dates: start: 20220612, end: 20220612
  14. AZACITIDINE [Suspect]
     Active Substance: AZACITIDINE
     Indication: Acute myeloid leukaemia
     Dosage: CYCLE 13-DOSE MODIFIED: COUNT RECOVERY
     Route: 042
     Dates: start: 20220808, end: 20220811
  15. AZACITIDINE [Suspect]
     Active Substance: AZACITIDINE
     Indication: Acute myeloid leukaemia
     Dosage: CYCLE 13-DOSE MODIFIED: COUNT RECOVERY
     Route: 042
     Dates: start: 20220710, end: 20220710
  16. AZACITIDINE [Suspect]
     Active Substance: AZACITIDINE
     Indication: Acute myeloid leukaemia
     Dosage: CYCLE 8-DOSE MODIFIED: COUNT RECOVERY
     Route: 042
     Dates: start: 20211228, end: 20211230
  17. AZACITIDINE [Suspect]
     Active Substance: AZACITIDINE
     Indication: Acute myeloid leukaemia
     Dosage: CYCLE 12-DOSE MODIFIED: COUNT RECOVERY
     Route: 042
     Dates: start: 20220704, end: 20220707
  18. AZACITIDINE [Suspect]
     Active Substance: AZACITIDINE
     Indication: Acute myeloid leukaemia
     Dosage: CYCLE 13-DOSE MODIFIED: COUNT RECOVERY
     Route: 042
     Dates: start: 20220814, end: 20220814
  19. AZACITIDINE [Suspect]
     Active Substance: AZACITIDINE
     Indication: Acute myeloid leukaemia
     Dosage: CYCLE 9-DOSE MODIFIED: COUNT RECOVERY
     Route: 042
     Dates: start: 20220130, end: 20220130
  20. AZACITIDINE [Suspect]
     Active Substance: AZACITIDINE
     Indication: Acute myeloid leukaemia
     Dosage: CYCLE 6-DOSE MODIFIED: COUNT RECOVERY
     Route: 042
     Dates: start: 20210930, end: 20210930
  21. AZACITIDINE [Suspect]
     Active Substance: AZACITIDINE
     Indication: Acute myeloid leukaemia
     Dosage: CYCLE 1
     Route: 042
     Dates: start: 20210406, end: 20210408
  22. AZACITIDINE [Suspect]
     Active Substance: AZACITIDINE
     Indication: Acute myeloid leukaemia
     Dosage: CYCLE 3
     Route: 042
     Dates: start: 20210620, end: 20210624
  23. AZACITIDINE [Suspect]
     Active Substance: AZACITIDINE
     Indication: Acute myeloid leukaemia
     Dosage: CYCLE 2
     Route: 042
     Dates: start: 20210509, end: 20210513
  24. AZACITIDINE [Suspect]
     Active Substance: AZACITIDINE
     Indication: Acute myeloid leukaemia
     Dosage: CYCLE 6-DOSE MODIFIED: COUNT RECOVERY
     Route: 042
     Dates: start: 20211003, end: 20211007
  25. AZACITIDINE [Suspect]
     Active Substance: AZACITIDINE
     Indication: Acute myeloid leukaemia
     Dosage: CYCLE 3
     Route: 042
     Dates: start: 20210627, end: 20210628
  26. AZACITIDINE [Suspect]
     Active Substance: AZACITIDINE
     Indication: Acute myeloid leukaemia
     Dosage: CYCLE 4 -INTERRUPTION: COUNT RECOVERY
     Route: 042
     Dates: start: 20210725, end: 20210729
  27. AZACITIDINE [Suspect]
     Active Substance: AZACITIDINE
     Indication: Acute myeloid leukaemia
     Dosage: CYCLE 5-DOSE MODIFIED: COUNT RECOVERY
     Route: 042
     Dates: start: 20210822, end: 20210826
  28. AZACITIDINE [Suspect]
     Active Substance: AZACITIDINE
     Indication: Acute myeloid leukaemia
     Dosage: CYCLE 7-DOSE MODIFIED: COUNT RECOVERY
     Route: 042
     Dates: start: 20211031, end: 20211104
  29. AZACITIDINE [Suspect]
     Active Substance: AZACITIDINE
     Indication: Acute myeloid leukaemia
     Dosage: CYCLE 2
     Route: 042
     Dates: start: 20210518, end: 20210518
  30. AZACITIDINE [Suspect]
     Active Substance: AZACITIDINE
     Indication: Acute myeloid leukaemia
     Dosage: CYCLE 1
     Route: 042
     Dates: start: 20210411, end: 20210414
  31. RAMIPRIL [Concomitant]
     Active Substance: RAMIPRIL
     Indication: Hypertension
     Dates: start: 20190908
  32. METFORMIN HYDROCHLORIDE [Concomitant]
     Active Substance: METFORMIN HYDROCHLORIDE
     Indication: Type 2 diabetes mellitus
     Dates: start: 20190908

REACTIONS (2)
  - Cerebral haemorrhage [Fatal]
  - Pneumonia [Recovered/Resolved]

NARRATIVE: CASE EVENT DATE: 20221107
